APPROVED DRUG PRODUCT: SODIUM CHLORIDE 0.9% IN PLASTIC CONTAINER
Active Ingredient: SODIUM CHLORIDE
Strength: 450MG/50ML (9MG/ML)
Dosage Form/Route: INJECTABLE;INJECTION
Application: N021569 | Product #001
Applicant: LIEBEL-FLARSHEIM CO LLC
Approved: Jul 27, 2006 | RLD: Yes | RS: No | Type: DISCN